FAERS Safety Report 23269841 (Version 2)
Quarter: 2023Q4

REPORT INFORMATION
  Report Type: Report from Study
  Country: BR (occurrence: BR)
  Receive Date: 20231207
  Receipt Date: 20231212
  Transmission Date: 20240109
  Serious: Yes (Hospitalization, Other)
  Sender: FDA-Public Use
  Company Number: BR-JNJFOC-20231127040

PATIENT
  Age: 47 Year
  Sex: Male
  Weight: 88 kg

DRUGS (5)
  1. SIMPONI [Suspect]
     Active Substance: GOLIMUMAB
     Indication: Rheumatoid arthritis
     Dosage: LAST  DOSE WAS ADMINISTERED ON 09-OCT
     Route: 058
     Dates: start: 20230909
  2. SIMPONI [Suspect]
     Active Substance: GOLIMUMAB
     Dosage: LAST DRUG APPLICATION: 30-AUG-2023
     Route: 058
     Dates: start: 20230308
  3. GOLIMUMAB [Suspect]
     Active Substance: GOLIMUMAB
     Indication: Rheumatoid arthritis
     Route: 058
  4. GOLIMUMAB [Suspect]
     Active Substance: GOLIMUMAB
  5. GOLIMUMAB [Suspect]
     Active Substance: GOLIMUMAB

REACTIONS (11)
  - Rheumatoid arthritis [Unknown]
  - Nausea [Recovered/Resolved]
  - Decreased appetite [Recovered/Resolved]
  - Asthenia [Unknown]
  - Haemorrhage [Unknown]
  - Gastrointestinal disorder [Unknown]
  - Night sweats [Unknown]
  - Blood pressure decreased [Unknown]
  - Weight decreased [Recovered/Resolved]
  - Drug ineffective [Unknown]
  - Off label use [Unknown]
